FAERS Safety Report 14803198 (Version 1)
Quarter: 2018Q2

REPORT INFORMATION
  Report Type: Report from Study
  Country: None (occurrence: NL)
  Receive Date: 20180425
  Receipt Date: 20180425
  Transmission Date: 20180711
  Serious: Yes (Hospitalization)
  Sender: FDA-Public Use
  Company Number: NL-ABBVIE-18K-114-2266308-00

PATIENT
  Sex: Female
  Weight: 48 kg

DRUGS (1)
  1. DUODOPA [Suspect]
     Active Substance: CARBIDOPA\LEVODOPA
     Indication: PARKINSON^S DISEASE
     Dosage: MORNING DOSE: 9; CONTINUOUS DOSE:?3.6; EXTRA DOSE: 1.7
     Route: 050
     Dates: start: 20170620

REACTIONS (2)
  - General physical health deterioration [Recovered/Resolved]
  - Parkinson^s disease [Unknown]
